FAERS Safety Report 7329083-6 (Version None)
Quarter: 2011Q1

REPORT INFORMATION
  Report Type: 
  Country: None (occurrence: None)
  Receive Date: 20110303
  Receipt Date: 20110224
  Transmission Date: 20110831
  Serious: Yes (Other)
  Sender: FDA-Public Use
  Company Number: FR-BRISTOL-MYERS SQUIBB COMPANY-15532294

PATIENT
  Age: 33 Year
  Sex: Female
  Weight: 56 kg

DRUGS (1)
  1. BARACLUDE [Suspect]
     Indication: HEPATITIS B
     Dosage: DURATION OF THERAPY: 1YR AND HALF
     Route: 048

REACTIONS (4)
  - ABORTION INDUCED [None]
  - GASTROENTERITIS [None]
  - PREGNANCY [None]
  - MALABSORPTION [None]
